FAERS Safety Report 5600680-9 (Version None)
Quarter: 2008Q1

REPORT INFORMATION
  Report Type: 
  Country: None (occurrence: None)
  Receive Date: 20080123
  Receipt Date: 20080114
  Transmission Date: 20080703
  Serious: Yes (Other)
  Sender: FDA-Public Use
  Company Number: US-PFIZER INC-2007107671

PATIENT
  Sex: Female
  Weight: 136.1 kg

DRUGS (6)
  1. CELEBREX [Suspect]
  2. ADVAIR DISKUS 100/50 [Concomitant]
     Indication: BRONCHITIS
  3. AVAPRO [Concomitant]
     Dosage: DAILY DOSE:300MG
  4. HYDROCHLOROTHIAZIDE [Concomitant]
  5. XANAX [Concomitant]
  6. ALBUTEROL [Concomitant]

REACTIONS (2)
  - PRURITUS [None]
  - TONGUE OEDEMA [None]
